FAERS Safety Report 6057012-4 (Version None)
Quarter: 2009Q1

REPORT INFORMATION
  Report Type: 
  Country: None (occurrence: None)
  Receive Date: 20090127
  Receipt Date: 20090127
  Transmission Date: 20090719
  Serious: Yes (Life-Threatening)
  Sender: FDA-Public Use
  Company Number: None

PATIENT
  Sex: Male

DRUGS (1)
  1. PENTAM [Suspect]
     Dosage: ONCE IV DRIP
     Route: 041

REACTIONS (4)
  - ANXIETY [None]
  - COUGH [None]
  - DYSPHAGIA [None]
  - DYSPNOEA [None]
